FAERS Safety Report 13090876 (Version 12)
Quarter: 2019Q2

REPORT INFORMATION
  Report Type: Report from Study
  Country: CA (occurrence: CA)
  Receive Date: 20170106
  Receipt Date: 20190613
  Transmission Date: 20190711
  Serious: Yes (Other)
  Sender: FDA-Public Use
  Company Number: CA-ROCHE-1637968

PATIENT
  Age: 61 Year
  Sex: Female

DRUGS (17)
  1. BENADRYL [Suspect]
     Active Substance: DIPHENHYDRAMINE HYDROCHLORIDE
     Indication: PREMEDICATION
     Route: 048
     Dates: start: 20150922
  2. DIPHENHYDRAMINE HCL [Concomitant]
     Active Substance: DIPHENHYDRAMINE HYDROCHLORIDE
     Indication: PREMEDICATION
     Route: 048
     Dates: start: 20150922
  3. HYDROMORPH CONTIN [Concomitant]
     Active Substance: HYDROMORPHONE
  4. MELOXICAM. [Concomitant]
     Active Substance: MELOXICAM
  5. RITUXAN [Suspect]
     Active Substance: RITUXIMAB
     Indication: RHEUMATOID ARTHRITIS
     Dosage: LATEST INFUSION 2017-AUG-31 (INFUSION 7)?MOST RECENT DOSE ON 10/OCT/2018
     Route: 042
     Dates: start: 20150922
  6. FUROSEMIDE. [Concomitant]
     Active Substance: FUROSEMIDE
  7. ACTEMRA [Suspect]
     Active Substance: TOCILIZUMAB
     Indication: RHEUMATOID ARTHRITIS
     Route: 042
     Dates: start: 20140917, end: 20150602
  8. SOFLAX [DOCUSATE SODIUM] [Concomitant]
  9. CYMBALTA [Concomitant]
     Active Substance: DULOXETINE HYDROCHLORIDE
  10. RABEPRAZOLE [Concomitant]
     Active Substance: RABEPRAZOLE
  11. RISEDRONATE [Concomitant]
     Active Substance: RISEDRONATE SODIUM
  12. PLAQUENIL [Concomitant]
     Active Substance: HYDROXYCHLOROQUINE SULFATE
  13. PREGABALIN. [Concomitant]
     Active Substance: PREGABALIN
  14. ACETAMINOPHEN. [Concomitant]
     Active Substance: ACETAMINOPHEN
     Indication: PREMEDICATION
     Route: 048
     Dates: start: 20150922
  15. METHYLPREDNISOLONE. [Concomitant]
     Active Substance: METHYLPREDNISOLONE
     Indication: PREMEDICATION
     Route: 042
     Dates: start: 20150922
  16. LACTULOSE. [Concomitant]
     Active Substance: LACTULOSE
  17. GABAPENTIN. [Concomitant]
     Active Substance: GABAPENTIN

REACTIONS (21)
  - Somnolence [Unknown]
  - Hypersensitivity [Unknown]
  - Spinal osteoarthritis [Recovering/Resolving]
  - Infusion related reaction [Recovering/Resolving]
  - Osteoarthritis [Recovering/Resolving]
  - Blood pressure diastolic decreased [Unknown]
  - Blood cholesterol increased [Unknown]
  - Dyspnoea [Not Recovered/Not Resolved]
  - Rheumatoid arthritis [Unknown]
  - Blood pressure systolic increased [Unknown]
  - Vasculitis [Unknown]
  - Blood pressure increased [Unknown]
  - Arthralgia [Not Recovered/Not Resolved]
  - Fibromyalgia [Unknown]
  - Pulmonary function test decreased [Unknown]
  - Oxygen saturation decreased [Recovered/Resolved]
  - Hypotension [Recovered/Resolved]
  - Neuralgia [Not Recovered/Not Resolved]
  - Blood pressure diastolic abnormal [Unknown]
  - Pyoderma gangrenosum [Unknown]
  - Oxygen saturation decreased [Unknown]

NARRATIVE: CASE EVENT DATE: 20150922
